FAERS Safety Report 16858245 (Version 4)
Quarter: 2019Q4

REPORT INFORMATION
  Report Type: Spontaneous
  Country: RS (occurrence: RS)
  Receive Date: 20190926
  Receipt Date: 20191023
  Transmission Date: 20200122
  Serious: Yes (Other)
  Sender: FDA-Public Use
  Company Number: RS-JNJFOC-20190927360

PATIENT
  Sex: Female
  Weight: 65 kg

DRUGS (5)
  1. EFTIL                              /01294701/ [Concomitant]
     Dosage: SODIUM VALPROATE AND VALPROIC ACID
     Route: 065
  2. ARIPIPRAZOL [Concomitant]
     Active Substance: ARIPIPRAZOLE
     Route: 065
  3. BENSEDIN [Concomitant]
     Route: 065
  4. PALIPERIDONE PALMITATE [Suspect]
     Active Substance: PALIPERIDONE PALMITATE
     Indication: SCHIZOPHRENIA
     Route: 030
  5. RIVOTRIL [Concomitant]
     Active Substance: CLONAZEPAM

REACTIONS (2)
  - Breast cancer [Unknown]
  - Blood prolactin increased [Unknown]
